FAERS Safety Report 7063460 (Version 2)
Quarter: 2013Q1

REPORT INFORMATION
  Report Type: Spontaneous
  Country: US (occurrence: US)
  Receive Date: 20090724
  Receipt Date: 20130204
  Transmission Date: 20140127
  Serious: Yes (Other)
  Sender: FDA-Public Use
  Company Number: US-ASTRAZENECA-2009UW20181

PATIENT
  Age: 66 Year
  Sex: Female
  Weight: 90.7 kg

DRUGS (9)
  1. ATACAND [Suspect]
     Dosage: 15 MG THEN 4 MG
     Route: 048
     Dates: start: 200906
  2. CRESTOR [Concomitant]
     Route: 048
  3. ACTOS [Concomitant]
  4. AMARYL [Concomitant]
  5. TRICOR [Concomitant]
  6. PROTONIX [Concomitant]
  7. CELEXA [Concomitant]
  8. LUNESTA [Concomitant]
  9. ZYRTEC [Concomitant]

REACTIONS (5)
  - Intervertebral disc protrusion [Unknown]
  - Pain [Recovered/Resolved]
  - Weight increased [Unknown]
  - Hypoaesthesia [Unknown]
  - Fluid retention [Unknown]
